FAERS Safety Report 7176104-X (Version None)
Quarter: 2010Q4

REPORT INFORMATION
  Report Type: 
  Country: None (occurrence: None)
  Receive Date: 20101207
  Receipt Date: 20101126
  Transmission Date: 20110411
  Serious: Yes (Life-Threatening, Hospitalization)
  Sender: FDA-Public Use
  Company Number: 1000017518

PATIENT
  Age: 63 Year
  Sex: Male

DRUGS (6)
  1. NEBIVOLOL HCL [Suspect]
     Indication: HYPERTENSION
     Dosage: 5MG (5 MG, 1 IN 1 D), ORAL
     Route: 048
     Dates: start: 20050104, end: 20100919
  2. LIPITOR [Concomitant]
  3. RASILEZ (ALISKIREN) [Concomitant]
  4. HYDROCHLOROTHIAZIDE [Concomitant]
  5. DICLOFENAC [Concomitant]
  6. ASPIRIN [Concomitant]

REACTIONS (2)
  - PSYCHOTIC DISORDER [None]
  - SUICIDE ATTEMPT [None]
